FAERS Safety Report 5963440-5 (Version None)
Quarter: 2008Q4

REPORT INFORMATION
  Report Type: 
  Country: None (occurrence: None)
  Receive Date: 20081121
  Receipt Date: 20081121
  Transmission Date: 20090506
  Serious: Yes (Life-Threatening)
  Sender: FDA-Public Use
  Company Number: None

PATIENT
  Age: 54 Year
  Sex: Male
  Weight: 94.5 kg

DRUGS (10)
  1. AZTREONAM [Suspect]
     Indication: PNEUMONIA
     Dosage: 2 GM IV Q 8 HRS
     Dates: start: 20080824, end: 20080904
  2. VANCOMYCIN HCL [Concomitant]
  3. RIFAMPIN [Concomitant]
  4. APAP TAB [Concomitant]
  5. ATORVASTATIN [Concomitant]
  6. ENALAPRIL MALEATE [Concomitant]
  7. LEXAPRO [Concomitant]
  8. ETHACRYNIC ACID [Concomitant]
  9. INSULIN [Concomitant]
  10. SENNA [Concomitant]

REACTIONS (3)
  - ERYTHEMA [None]
  - RASH GENERALISED [None]
  - RASH MACULO-PAPULAR [None]
